FAERS Safety Report 5948151-4 (Version None)
Quarter: 2008Q4

REPORT INFORMATION
  Report Type: 
  Country: None (occurrence: None)
  Receive Date: 20081107
  Receipt Date: 20081029
  Transmission Date: 20090506
  Serious: Yes (Hospitalization, Other)
  Sender: FDA-Public Use
  Company Number: 2008AP002942

PATIENT
  Age: 39 Year
  Sex: Female

DRUGS (4)
  1. CIPROFLOXACIN [Suspect]
     Indication: ABSCESS
     Dosage: 500 MG;PO;BID
     Route: 048
  2. CIPROFLOXACIN [Suspect]
     Indication: DIVERTICULUM
     Dosage: 500 MG;PO;BID
     Route: 048
  3. METRONIDAZOLE [Suspect]
     Indication: ABSCESS
     Dosage: 500 MG;PO;TID
     Route: 048
  4. METRONIDAZOLE [Suspect]
     Indication: DIVERTICULUM
     Dosage: 500 MG;PO;TID
     Route: 048

REACTIONS (9)
  - ABDOMINAL PAIN UPPER [None]
  - ANOREXIA [None]
  - HEPATITIS [None]
  - HEPATOTOXICITY [None]
  - INTERNATIONAL NORMALISED RATIO INCREASED [None]
  - NAUSEA [None]
  - RENAL LIPOMATOSIS [None]
  - SPLENOMEGALY [None]
  - VOMITING [None]
